FAERS Safety Report 20331051 (Version 1)
Quarter: 2022Q1

REPORT INFORMATION
  Report Type: Spontaneous
  Country: US (occurrence: US)
  Receive Date: 20220113
  Receipt Date: 20220113
  Transmission Date: 20220424
  Serious: Yes (Hospitalization, Other)
  Sender: FDA-Public Use
  Company Number: US-BAYER-2022A004298

PATIENT
  Age: 48 Year
  Sex: Female

DRUGS (3)
  1. MIRENA [Suspect]
     Active Substance: LEVONORGESTREL
     Dosage: 20?G/DAY
     Route: 015
     Dates: start: 20151201
  2. CRESTOR [Suspect]
     Active Substance: ROSUVASTATIN CALCIUM
  3. DILTIAZEM [Suspect]
     Active Substance: DILTIAZEM

REACTIONS (4)
  - Embedded device [Not Recovered/Not Resolved]
  - Device breakage [Not Recovered/Not Resolved]
  - Pelvic pain [Unknown]
  - Complication of device removal [None]

NARRATIVE: CASE EVENT DATE: 20210801
